FAERS Safety Report 8146120-X (Version None)
Quarter: 2012Q1

REPORT INFORMATION
  Report Type: 
  Country: None (occurrence: None)
  Receive Date: 20120217
  Receipt Date: 20110222
  Transmission Date: 20120608
  Serious: No
  Sender: FDA-Public Use
  Company Number: US-ABBOTT-11P-163-0706664-00

PATIENT
  Sex: Male
  Weight: 100.33 kg

DRUGS (7)
  1. SIMCOR [Suspect]
     Indication: BLOOD CHOLESTEROL
     Dosage: 500/20 TWICE A DAY
     Dates: start: 20110201
  2. ALLOPURINOL [Concomitant]
     Indication: GOUT
  3. OMEPRAZOLE [Concomitant]
     Indication: DYSPEPSIA
  4. GLYBURIDE [Concomitant]
     Indication: DIABETES MELLITUS
  5. LISINOPRIL AND HYDROCHLOROTHIAZIDE [Concomitant]
     Indication: HYPERTENSION
  6. METOPROLOL TARTRATE [Concomitant]
     Indication: HYPERTENSION
  7. HUMALOG [Concomitant]
     Indication: DIABETES MELLITUS
     Dosage: 50/50

REACTIONS (1)
  - RASH [None]
